FAERS Safety Report 22975412 (Version 4)
Quarter: 2023Q4

REPORT INFORMATION
  Report Type: Report from Study
  Country: ES (occurrence: ES)
  Receive Date: 20230924
  Receipt Date: 20231004
  Transmission Date: 20240110
  Serious: Yes (Death, Life-Threatening, Hospitalization, Other)
  Sender: FDA-Public Use
  Company Number: ES-JNJFOC-20230937418

PATIENT
  Age: 68 Year
  Sex: Male

DRUGS (3)
  1. IBRUTINIB [Suspect]
     Active Substance: IBRUTINIB
     Indication: Waldenstrom^s macroglobulinaemia
     Dosage: FIRST ADMIN DATE- 2021
     Route: 048
  2. IBRUTINIB [Suspect]
     Active Substance: IBRUTINIB
     Indication: Waldenstrom^s macroglobulinaemia
     Route: 048
     Dates: start: 20210113, end: 20210528
  3. VORICONAZOLE [Interacting]
     Active Substance: VORICONAZOLE
     Indication: Product used for unknown indication
     Route: 065
     Dates: start: 20210518

REACTIONS (6)
  - Septic shock [Fatal]
  - Pneumonia [Fatal]
  - Drug interaction [Fatal]
  - Atrial fibrillation [Fatal]
  - Pancytopenia [Fatal]
  - Renal failure [Fatal]
